FAERS Safety Report 5870535-3 (Version None)
Quarter: 2008Q3

REPORT INFORMATION
  Report Type: 
  Country: None (occurrence: None)
  Receive Date: 20080904
  Receipt Date: 20080828
  Transmission Date: 20090109
  Serious: Yes (Other)
  Sender: FDA-Public Use
  Company Number: CA-MERCK-0808CAN00128

PATIENT
  Age: 45 Year
  Sex: Male

DRUGS (9)
  1. JANUVIA [Suspect]
     Indication: TYPE 2 DIABETES MELLITUS
     Route: 048
     Dates: start: 20080801, end: 20080801
  2. METFORMIN [Concomitant]
     Route: 065
  3. METFORMIN [Concomitant]
     Route: 065
  4. AMARYL [Concomitant]
     Route: 065
  5. ACTOS [Concomitant]
     Route: 065
  6. ATACAND [Concomitant]
     Route: 065
  7. INSULIN [Concomitant]
     Route: 065
  8. TIAZAC [Concomitant]
     Route: 065
  9. CRESTOR [Concomitant]
     Route: 065

REACTIONS (5)
  - CEREBROVASCULAR ACCIDENT [None]
  - FATIGUE [None]
  - HYPERGLYCAEMIA [None]
  - SENSATION OF HEAVINESS [None]
  - WEIGHT INCREASED [None]
